FAERS Safety Report 4578203-5 (Version None)
Quarter: 2005Q1

REPORT INFORMATION
  Report Type: 
  Country: None (occurrence: None)
  Receive Date: 20050209
  Receipt Date: 20050124
  Transmission Date: 20050727
  Serious: Yes (Hospitalization)
  Sender: FDA-Public Use
  Company Number: US_0411108016

PATIENT
  Age: 13 Year
  Sex: Female

DRUGS (8)
  1. ZYPREXA [Suspect]
     Indication: SCHIZOPHRENIA
     Dosage: 20 MG
     Dates: start: 20040120, end: 20040301
  2. LAMOTRIGINE [Concomitant]
  3. ESCITALOPRAM [Concomitant]
  4. FERROUS SULFATE TAB [Concomitant]
  5. DIPHENHYDRAMINE HCL [Concomitant]
  6. LITIUM CARBONATE (LITHIUM CARBONATE) [Concomitant]
  7. QUETIAPINE [Concomitant]
  8. RISPERIDONE [Concomitant]

REACTIONS (12)
  - BLOOD GLUCOSE INCREASED [None]
  - DECREASED APPETITE [None]
  - ELECTROENCEPHALOGRAM ABNORMAL [None]
  - EXCORIATION [None]
  - FEELING GUILTY [None]
  - GLYCOSYLATED HAEMOGLOBIN INCREASED [None]
  - INTENTIONAL SELF-INJURY [None]
  - POLYDIPSIA [None]
  - POLYURIA [None]
  - PSYCHOTIC DISORDER [None]
  - SUICIDAL IDEATION [None]
  - VISION BLURRED [None]
